FAERS Safety Report 25285643 (Version 1)
Quarter: 2025Q2

REPORT INFORMATION
  Report Type: Report from Study
  Country: CN (occurrence: CN)
  Receive Date: 20250509
  Receipt Date: 20250509
  Transmission Date: 20250717
  Serious: Yes (Hospitalization)
  Sender: ROCHE
  Company Number: CN-ROCHE-10000279225

PATIENT
  Age: 60 Year
  Sex: Male
  Weight: 52 kg

DRUGS (1)
  1. GAZYVA [Suspect]
     Active Substance: OBINUTUZUMAB
     Indication: Follicular lymphoma
     Route: 042
     Dates: start: 20241220

REACTIONS (1)
  - Lymphoma transformation [Not Recovered/Not Resolved]

NARRATIVE: CASE EVENT DATE: 20250507
